FAERS Safety Report 9433053 (Version 1)
Quarter: 2013Q3

REPORT INFORMATION
  Report Type: Spontaneous
  Country: US (occurrence: US)
  Receive Date: 20130731
  Receipt Date: 20130731
  Transmission Date: 20140515
  Serious: Yes (Hospitalization)
  Sender: FDA-Public Use
  Company Number: US-BAYER-2013-090442

PATIENT
  Age: 15 Year
  Sex: Female

DRUGS (30)
  1. BEYAZ [Suspect]
     Dosage: UNK
  2. MELOXICAM [Concomitant]
  3. CEFUROXIME [Concomitant]
  4. ONDANSETRON [Concomitant]
  5. SINGULAIR [Concomitant]
  6. IPRATROPIUM [Concomitant]
  7. ASTEPRO [Concomitant]
  8. FLUTICASONE [Concomitant]
  9. METFORMIN [Concomitant]
  10. RANITIDINE [Concomitant]
  11. SERTRALINE [Concomitant]
  12. PROVENTIL [Concomitant]
  13. DEXTROMETHORPHAN HYDROBROMIDE [Concomitant]
  14. ATROVENT [Concomitant]
  15. PREDNISONE [Concomitant]
  16. CHERATUSSIN AC [Concomitant]
  17. EPINEPHRINE [Concomitant]
  18. AMPHETAMINE SALTS [Concomitant]
  19. MEDROL [Concomitant]
  20. DEPO-PROVERA [Concomitant]
     Indication: OVARIAN CYST
     Dosage: UNK
     Dates: start: 201204
  21. DEPO-PROVERA [Concomitant]
     Indication: ABDOMINAL PAIN
  22. AUGMENTIN [Concomitant]
  23. ZITHROMAX [Concomitant]
  24. CLINDAMYCIN [Concomitant]
     Dosage: UNK
     Dates: start: 201203
  25. ROCEPHIN [Concomitant]
     Dosage: UNK
     Dates: start: 201203
  26. LEVAQUIN [Concomitant]
     Dosage: UNK
     Dates: start: 20120313
  27. VANCOMYCIN [Concomitant]
  28. ZANTAC [Concomitant]
  29. ADVAIR [Concomitant]
  30. CEFTIN [Concomitant]

REACTIONS (2)
  - Deep vein thrombosis [None]
  - Vena cava thrombosis [None]
